FAERS Safety Report 11093357 (Version 1)
Quarter: 2015Q2

REPORT INFORMATION
  Report Type: Spontaneous
  Country: GR (occurrence: GR)
  Receive Date: 20150506
  Receipt Date: 20150506
  Transmission Date: 20150821
  Serious: Yes (Death)
  Sender: FDA-Public Use
  Company Number: GR-ACORDA-ACO_111216_2015

PATIENT
  Sex: Female

DRUGS (1)
  1. QUTENZA [Suspect]
     Active Substance: CAPSAICIN
     Indication: NEUROPATHY PERIPHERAL
     Dosage: 2 DF, UNK
     Route: 003
     Dates: start: 20150123, end: 20150123

REACTIONS (1)
  - Death [Fatal]

NARRATIVE: CASE EVENT DATE: 201503
